FAERS Safety Report 10543181 (Version 1)
Quarter: 2014Q4

REPORT INFORMATION
  Report Type: Spontaneous
  Country: US (occurrence: None)
  Receive Date: 20141010
  Receipt Date: 20141010
  Transmission Date: 20150529
  Serious: Yes (Other)
  Sender: FDA-Public Use
  Company Number: 163-POMAL-14080216

PATIENT
  Age: 71 Year
  Sex: Male

DRUGS (3)
  1. MEROPHENEM [Concomitant]
  2. POMALYST [Suspect]
     Active Substance: POMALIDOMIDE
     Indication: PLASMA CELL MYELOMA
     Dosage: 4 MG, 1 IN 1 D, PO?MAY 2013 - TEMPORARILY
     Route: 048
     Dates: start: 201305
  3. VANCOCIN [Concomitant]
     Active Substance: VANCOMYCIN HYDROCHLORIDE

REACTIONS (6)
  - Pharyngitis [None]
  - Plasma cell myeloma [None]
  - Dyspepsia [None]
  - White blood cells urine [None]
  - Asthenia [None]
  - Haemoglobin decreased [None]

NARRATIVE: CASE EVENT DATE: 20140514
